FAERS Safety Report 4771120-7 (Version None)
Quarter: 2005Q3

REPORT INFORMATION
  Report Type: 
  Country: None (occurrence: None)
  Receive Date: 20050912
  Receipt Date: 20050722
  Transmission Date: 20060218
  Serious: No
  Sender: FDA-Public Use
  Company Number: 2005-01569

PATIENT
  Age: 94 Year
  Sex: Female
  Weight: 59 kg

DRUGS (2)
  1. VELCADE [Suspect]
     Indication: MULTIPLE MYELOMA
     Dosage: 2.00 MG, INTRAVENOUS
     Route: 042
  2. AREDIA [Suspect]
     Indication: MULTIPLE MYELOMA
     Dosage: 45.00 MG, INTRAVENOUS
     Route: 042

REACTIONS (5)
  - ANOREXIA [None]
  - BLOOD COUNT ABNORMAL [None]
  - FATIGUE [None]
  - FEELING HOT [None]
  - PAIN [None]
